FAERS Safety Report 16298455 (Version 1)
Quarter: 2019Q2

REPORT INFORMATION
  Report Type: Spontaneous
  Country: US (occurrence: US)
  Receive Date: 20190510
  Receipt Date: 20190510
  Transmission Date: 20190711
  Serious: Yes (Hospitalization)
  Sender: FDA-Public Use
  Company Number: US-ENDO PHARMACEUTICALS INC-2019-104447

PATIENT
  Age: 53 Year
  Sex: Female

DRUGS (9)
  1. HYDROMORPHONE [Concomitant]
     Active Substance: HYDROMORPHONE
     Indication: PROCEDURAL PAIN
     Dosage: UNK UNKNOWN, UNKNOWN
     Route: 065
  2. MIDAZOLAM [Concomitant]
     Active Substance: MIDAZOLAM HYDROCHLORIDE
     Indication: SEDATION
     Dosage: 2 MG, UNKNOWN
     Route: 042
  3. FENTANYL. [Concomitant]
     Active Substance: FENTANYL
     Indication: SEDATION
     Dosage: 225 MG, UNKNOWN (OVER 1 HOUR)
     Route: 042
  4. DULOXETINE. [Concomitant]
     Active Substance: DULOXETINE
     Indication: SEASONAL AFFECTIVE DISORDER
     Dosage: 60 MG, UNKNOWN
     Route: 065
  5. KETALAR [Suspect]
     Active Substance: KETAMINE HYDROCHLORIDE
     Indication: BREAKTHROUGH PAIN
     Dosage: 10 MG, 2 TO 3 X DAY (0.1-0.15 MG/KG)
     Route: 040
  6. PROPOFOL. [Concomitant]
     Active Substance: PROPOFOL
     Indication: PRODUCT USED FOR UNKNOWN INDICATION
     Dosage: UNK UNKNOWN, UNKNOWN
     Route: 065
  7. KETALAR [Suspect]
     Active Substance: KETAMINE HYDROCHLORIDE
     Indication: SEDATIVE THERAPY
     Dosage: 0.1 MG/KG/HOUR, UNKNOWN
     Route: 041
  8. KETALAR [Suspect]
     Active Substance: KETAMINE HYDROCHLORIDE
     Dosage: 0.2 MG/KG, UNKNOWN
     Route: 065
  9. MORPHINE [Concomitant]
     Active Substance: MORPHINE
     Indication: PAIN
     Dosage: UNK UNKNOWN, UNKNOWN
     Route: 042

REACTIONS (2)
  - Off label use [Unknown]
  - Mania [Recovered/Resolved]
